FAERS Safety Report 4450520-9 (Version None)
Quarter: 2004Q3

REPORT INFORMATION
  Report Type: 
  Country: None (occurrence: None)
  Receive Date: 20040913
  Receipt Date: 20040521
  Transmission Date: 20050211
  Serious: No
  Sender: FDA-Public Use
  Company Number: 2004-BP-03090BP(1)

PATIENT
  Age: 74 Year
  Sex: Female

DRUGS (12)
  1. SPIRIVA [Suspect]
     Indication: CHRONIC OBSTRUCTIVE AIRWAYS DISEASE
     Dosage: 18 MCG (18 MCG, 18 MCG DAILY), IH
     Route: 055
     Dates: start: 20040405, end: 20040413
  2. IPRATROPIUM BROMIDE [Concomitant]
  3. XOPENEX [Concomitant]
  4. PRILOSEC [Concomitant]
  5. THEO-DUR [Concomitant]
  6. XANAX [Concomitant]
  7. COUMADIN [Concomitant]
  8. LIPITOR [Concomitant]
  9. PREMARIN [Concomitant]
  10. SINGULAIR [Concomitant]
  11. AUGMENTIN [Concomitant]
  12. OXYGEN (OXYGEN) [Concomitant]

REACTIONS (2)
  - DYSPNOEA EXACERBATED [None]
  - INFECTION [None]
